FAERS Safety Report 13680730 (Version 3)
Quarter: 2017Q4

REPORT INFORMATION
  Report Type: Spontaneous
  Country: JP (occurrence: JP)
  Receive Date: 20170623
  Receipt Date: 20171030
  Transmission Date: 20180320
  Serious: Yes (Hospitalization, Other)
  Sender: FDA-Public Use
  Company Number: JP-BRISTOL-MYERS SQUIBB COMPANY-BMS-2017-054306

PATIENT
  Age: 66 Year
  Sex: Male

DRUGS (1)
  1. OPDIVO [Suspect]
     Active Substance: NIVOLUMAB
     Indication: NON-SMALL CELL LUNG CANCER RECURRENT
     Dosage: 3 MG/KG, BIWEEKLY
     Route: 041
     Dates: start: 201605

REACTIONS (6)
  - Pleurodesis [Unknown]
  - Pneumothorax [Not Recovered/Not Resolved]
  - Medical device implantation [Unknown]
  - Malignant neoplasm progression [Unknown]
  - Lung cyst [Not Recovered/Not Resolved]
  - Bronchial obstruction [Unknown]

NARRATIVE: CASE EVENT DATE: 2016
